FAERS Safety Report 8989963 (Version 2)
Quarter: 2013Q1

REPORT INFORMATION
  Report Type: Spontaneous
  Country: US (occurrence: US)
  Receive Date: 20121228
  Receipt Date: 20130131
  Transmission Date: 20140127
  Serious: Yes (Other)
  Sender: FDA-Public Use
  Company Number: US-ELI_LILLY_AND_COMPANY-US201208003267

PATIENT
  Age: 69 None
  Sex: Female

DRUGS (3)
  1. FORTEO [Suspect]
     Indication: OSTEOPOROSIS
     Dosage: 20 UG, QD
     Dates: start: 20120712
  2. FORTEO [Suspect]
     Dosage: 20 UG, QD
     Route: 065
     Dates: start: 201207, end: 20121218
  3. TAMOXIFEN [Concomitant]

REACTIONS (8)
  - Intraductal proliferative breast lesion [Recovered/Resolved]
  - Breast calcifications [Unknown]
  - Fatigue [Recovering/Resolving]
  - Stress [Recovering/Resolving]
  - Gait disturbance [Recovering/Resolving]
  - Somnolence [Recovering/Resolving]
  - Insomnia [Recovering/Resolving]
  - Urinary tract infection [Not Recovered/Not Resolved]
